FAERS Safety Report 11363394 (Version 1)
Quarter: 2015Q3

REPORT INFORMATION
  Report Type: Spontaneous
  Country: US (occurrence: US)
  Receive Date: 20150811
  Receipt Date: 20150811
  Transmission Date: 20151125
  Serious: No
  Sender: FDA-Public Use
  Company Number: US-009507513-1507USA014264

PATIENT
  Age: 23 Year
  Sex: Female
  Weight: 54.42 kg

DRUGS (1)
  1. NEXPLANON [Suspect]
     Active Substance: ETONOGESTREL
     Indication: CONTRACEPTION
     Dosage: 1 ROD 3 YEARS, IMPLANT LEFT ARM
     Route: 059
     Dates: start: 20150526

REACTIONS (2)
  - Nausea [Unknown]
  - Menorrhagia [Unknown]

NARRATIVE: CASE EVENT DATE: 201506
